FAERS Safety Report 5345965-9 (Version None)
Quarter: 2007Q2

REPORT INFORMATION
  Report Type: 
  Country: None (occurrence: None)
  Receive Date: 20070605
  Receipt Date: 20070529
  Transmission Date: 20071010
  Serious: Yes (Hospitalization)
  Sender: FDA-Public Use
  Company Number: US-JNJFOC-20070507098

PATIENT
  Sex: Female
  Weight: 54.43 kg

DRUGS (2)
  1. DURAGESIC-100 [Suspect]
     Dosage: 2X 25 UG/HR PATCHES
     Route: 062
  2. DURAGESIC-100 [Suspect]
     Indication: PAIN
     Route: 062

REACTIONS (4)
  - BACK PAIN [None]
  - DRUG EFFECT DECREASED [None]
  - SPINAL NERVE STIMULATOR IMPLANTATION [None]
  - WRONG TECHNIQUE IN DRUG USAGE PROCESS [None]
